FAERS Safety Report 10433625 (Version 1)
Quarter: 2014Q3

REPORT INFORMATION
  Report Type: Spontaneous
  Country: US (occurrence: None)
  Receive Date: 20140904
  Receipt Date: 20140904
  Transmission Date: 20150326
  Serious: Yes (Hospitalization)
  Sender: FDA-Public Use
  Company Number: None

PATIENT
  Age: 57 Year
  Sex: Male
  Weight: 98.43 kg

DRUGS (13)
  1. HUMALOG [Concomitant]
     Active Substance: INSULIN LISPRO
  2. VITAMIN C [Concomitant]
     Active Substance: ASCORBIC ACID
  3. NEUPOGEN [Concomitant]
     Active Substance: FILGRASTIM
  4. ARAMESP [Concomitant]
  5. LACTULOSE. [Concomitant]
     Active Substance: LACTULOSE
  6. ACTIGAIL [Concomitant]
  7. RIFAXIMIN [Concomitant]
     Active Substance: RIFAXIMIN
  8. JANUMET [Concomitant]
     Active Substance: METFORMIN HYDROCHLORIDE\SITAGLIPTIN PHOSPHATE
  9. PEGIFN ALFA 2A [Suspect]
     Active Substance: PEGINTERFERON ALFA-2A
     Indication: HEPATITIS C
     Dosage: 180MCG, Q7DAY, SUBCUTANEOS
     Route: 058
     Dates: start: 20140207, end: 20140314
  10. SOFOABUVIR [Suspect]
     Active Substance: SOFOSBUVIR
     Indication: HEPATITIS C
     Route: 048
     Dates: start: 20140202
  11. PROTONIX [Concomitant]
     Active Substance: PANTOPRAZOLE SODIUM
  12. OSCAL D [Concomitant]
     Active Substance: CALCIUM CARBONATE\CHOLECALCIFEROL
  13. ERGOCALCIFEROL. [Concomitant]
     Active Substance: ERGOCALCIFEROL

REACTIONS (4)
  - Hepatic encephalopathy [None]
  - Pancytopenia [None]
  - Hyperglycaemia [None]
  - Jaundice [None]

NARRATIVE: CASE EVENT DATE: 20140318
